FAERS Safety Report 7367614-0 (Version None)
Quarter: 2011Q1

REPORT INFORMATION
  Report Type: 
  Country: None (occurrence: None)
  Receive Date: 20110322
  Receipt Date: 20110308
  Transmission Date: 20110831
  Serious: Yes (Hospitalization, Other)
  Sender: FDA-Public Use
  Company Number: GB-PFIZER INC-2011061198

PATIENT
  Age: 49 Year
  Sex: Female

DRUGS (5)
  1. IBUPROFEN [Suspect]
     Dosage: 120 MG, UNK
  2. AMITRIPTYLINE [Suspect]
     Dosage: 420 MG, UNK
  3. NIZATIDINE [Suspect]
     Dosage: 1.2 G, UNK
  4. DIAZEPAM [Suspect]
     Dosage: 26 MG, UNK
  5. PETHIDINE [Suspect]
     Dosage: 300 MG, UNK

REACTIONS (2)
  - LOSS OF CONSCIOUSNESS [None]
  - MULTIPLE DRUG OVERDOSE INTENTIONAL [None]
